FAERS Safety Report 7894410-8 (Version None)
Quarter: 2011Q4

REPORT INFORMATION
  Report Type: 
  Country: None (occurrence: None)
  Receive Date: 20111104
  Receipt Date: 20111031
  Transmission Date: 20120403
  Serious: Yes (Life-Threatening, Hospitalization, Other)
  Sender: FDA-Public Use
  Company Number: US-ASTRAZENECA-2011SE50649

PATIENT
  Age: 29333 Day
  Sex: Male

DRUGS (10)
  1. ANGIOTENSIN CONVERTING ENZYME INHIBITOR [Concomitant]
  2. ADRENALIN IN OIL INJ [Suspect]
     Indication: EPIDURAL ANAESTHESIA
     Route: 008
     Dates: start: 20110629
  3. SAXAGLIPTIN CODE NOT BROKEN [Concomitant]
     Indication: TYPE 2 DIABETES MELLITUS
     Route: 065
     Dates: start: 20110217, end: 20110629
  4. EZETIMIBE [Concomitant]
     Dates: start: 20110512
  5. SAXAGLIPTIN CODE NOT BROKEN [Concomitant]
     Route: 065
     Dates: start: 20110711
  6. FENTANYL [Suspect]
     Indication: EPIDURAL ANAESTHESIA
     Route: 008
     Dates: start: 20110629
  7. DIURETICS [Concomitant]
  8. ASPIRIN [Concomitant]
  9. STATIN [Concomitant]
  10. ROPIVACAINE HYDROCHLORIDE [Suspect]
     Indication: EPIDURAL ANAESTHESIA
     Route: 008
     Dates: start: 20110629

REACTIONS (6)
  - POST PROCEDURAL HAEMORRHAGE [None]
  - THROMBOCYTOPENIA [None]
  - SICK SINUS SYNDROME [None]
  - ANAEMIA [None]
  - HYPOTENSION [None]
  - INCORRECT ROUTE OF DRUG ADMINISTRATION [None]
